FAERS Safety Report 9090564 (Version 1)
Quarter: 2013Q1

REPORT INFORMATION
  Report Type: Report from Study
  Country: US (occurrence: US)
  Receive Date: 20130201
  Receipt Date: 20130201
  Transmission Date: 20140127
  Serious: No
  Sender: FDA-Public Use
  Company Number: US-ABBOTT-13P-163-1030357-00

PATIENT
  Age: 69 Year
  Sex: Male

DRUGS (6)
  1. HUMIRA [Suspect]
     Indication: CROHN^S DISEASE
     Dates: start: 20120717
  2. ASACOL [Concomitant]
     Indication: CROHN^S DISEASE
     Dosage: TWICE DAILY UNTIL GONE
  3. PANTOPRAZOLE [Concomitant]
     Indication: GASTROOESOPHAGEAL REFLUX DISEASE
     Dosage: 40 MG DAILY
  4. NORITATE METRONIDAZOLE [Concomitant]
     Indication: ROSACEA
  5. DOXYCYCLINE MONOHYDRATE [Concomitant]
     Indication: ROSACEA
  6. VESICARE [Concomitant]
     Indication: URINARY INCONTINENCE
     Dosage: 10 MG DAILY

REACTIONS (1)
  - Influenza [Recovering/Resolving]
